FAERS Safety Report 9934916 (Version 9)
Quarter: 2019Q3

REPORT INFORMATION
  Report Type: Report from Study
  Country: US (occurrence: US)
  Receive Date: 20140228
  Receipt Date: 20190827
  Transmission Date: 20191005
  Serious: Yes (Hospitalization, Other)
  Sender: FDA-Public Use
  Company Number: US-SA-2014SA005360

PATIENT
  Age: 53 Year
  Sex: Female

DRUGS (9)
  1. TERIFLUNOMIDE. [Suspect]
     Active Substance: TERIFLUNOMIDE
     Dosage: 14 MG, QD
     Route: 048
     Dates: start: 20190810
  2. TRAMADOL. [Concomitant]
     Active Substance: TRAMADOL
     Dosage: UNK
  3. IBUPROFEN. [Concomitant]
     Active Substance: IBUPROFEN
     Dosage: UNK
  4. TERIFLUNOMIDE. [Suspect]
     Active Substance: TERIFLUNOMIDE
     Indication: MULTIPLE SCLEROSIS
     Dosage: 14 MG,QD
     Route: 048
     Dates: start: 20131116, end: 20160601
  5. CODEINE [Concomitant]
     Active Substance: CODEINE
     Dosage: UNK
  6. ERYTHROMYCIN. [Concomitant]
     Active Substance: ERYTHROMYCIN
     Dosage: UNK
  7. PENICILLIN NOS [Concomitant]
     Active Substance: PENICILLIN
     Dosage: UNK
  8. ACETYLSALICYLIC ACID [Concomitant]
     Active Substance: ASPIRIN
     Dosage: UNK
  9. PLAQUENIL [Concomitant]
     Active Substance: HYDROXYCHLOROQUINE SULFATE
     Indication: ARTHRITIS
     Dosage: UNK
     Dates: start: 201905

REACTIONS (37)
  - Pruritus generalised [Unknown]
  - Depression [Unknown]
  - Stress [Not Recovered/Not Resolved]
  - Pain in extremity [Unknown]
  - Anxiety [Unknown]
  - Heart rate irregular [Not Recovered/Not Resolved]
  - Alopecia [Recovering/Resolving]
  - Nausea [Not Recovered/Not Resolved]
  - Coccidioidomycosis [Unknown]
  - Muscular weakness [Unknown]
  - Dizziness [Unknown]
  - Balance disorder [Not Recovered/Not Resolved]
  - Blood magnesium decreased [Unknown]
  - Palpitations [Unknown]
  - Multiple sclerosis relapse [Recovered/Resolved]
  - Neuropathy peripheral [Not Recovered/Not Resolved]
  - Hypertonic bladder [Not Recovered/Not Resolved]
  - Blood potassium decreased [Unknown]
  - Drug ineffective [Unknown]
  - Hip arthroplasty [Recovered/Resolved]
  - Insomnia [Not Recovered/Not Resolved]
  - Fatigue [Not Recovered/Not Resolved]
  - Gait disturbance [Unknown]
  - Multiple sclerosis relapse [Unknown]
  - Hypersomnia [Unknown]
  - Nervous system disorder [Unknown]
  - Hypotension [Unknown]
  - Dyspnoea [Unknown]
  - Weight decreased [Unknown]
  - Diarrhoea [Unknown]
  - Hypersensitivity [Not Recovered/Not Resolved]
  - Unevaluable event [Not Recovered/Not Resolved]
  - Thyroid mass [Unknown]
  - Pneumonia [Unknown]
  - Decreased appetite [Unknown]
  - Trigeminal nerve disorder [Not Recovered/Not Resolved]
  - Back pain [Unknown]

NARRATIVE: CASE EVENT DATE: 2013
